FAERS Safety Report 11680549 (Version 2)
Quarter: 2015Q4

REPORT INFORMATION
  Report Type: Spontaneous
  Country: US (occurrence: US)
  Receive Date: 20151027
  Receipt Date: 20151104
  Transmission Date: 20160304
  Serious: No
  Sender: FDA-Public Use
  Company Number: US-ELI_LILLY_AND_COMPANY-US201009004735

PATIENT
  Age: 72 Year
  Sex: Female

DRUGS (6)
  1. FORTEO [Suspect]
     Active Substance: TERIPARATIDE
     Indication: OSTEOPOROSIS
     Dosage: 20 UG, DAILY (1/D)
     Route: 065
     Dates: start: 20090807
  2. FORTEO [Suspect]
     Active Substance: TERIPARATIDE
     Dosage: 20 UG, QD
  3. ANTIBIOTICS [Concomitant]
     Active Substance: UNSPECIFIED INGREDIENT
  4. FORTEO [Suspect]
     Active Substance: TERIPARATIDE
     Dosage: 20 UG, DAILY (1/D)
     Route: 065
  5. METHOTREXATE [Concomitant]
     Active Substance: METHOTREXATE
     Dosage: 4 U, WEEKLY (1/W)
  6. ENBREL [Concomitant]
     Active Substance: ETANERCEPT
     Dosage: UNK, WEEKLY (1/W)

REACTIONS (14)
  - Asthenia [Unknown]
  - Nausea [Unknown]
  - Nasopharyngitis [Unknown]
  - Blood pressure increased [Unknown]
  - Cataract [Unknown]
  - Pharyngeal erythema [Unknown]
  - Muscle spasms [Unknown]
  - Asthma [Unknown]
  - Sinusitis [Unknown]
  - Pain [Unknown]
  - Arthralgia [Unknown]
  - Fatigue [Unknown]
  - Joint crepitation [Unknown]
  - Inflammation [Unknown]

NARRATIVE: CASE EVENT DATE: 201002
